FAERS Safety Report 12968803 (Version 1)
Quarter: 2016Q4

REPORT INFORMATION
  Report Type: Spontaneous
  Country: US (occurrence: US)
  Receive Date: 20161123
  Receipt Date: 20161123
  Transmission Date: 20170207
  Serious: Yes (Death)
  Sender: FDA-Public Use
  Company Number: US-PFIZER INC-2016536594

PATIENT
  Age: 44 Year
  Sex: Male

DRUGS (1)
  1. INLYTA [Suspect]
     Active Substance: AXITINIB
     Indication: RENAL CANCER
     Dosage: 5 MG, 2X/DAY, (1 TABLET BY MOUTH EVERY 12 HOURS. MAY BE TAKEN WITH OR WITHOUT FOOD)
     Route: 048
     Dates: start: 201606

REACTIONS (1)
  - Death [Fatal]
